FAERS Safety Report 9296287 (Version 3)
Quarter: 2013Q4

REPORT INFORMATION
  Report Type: Spontaneous
  Country: CA (occurrence: CA)
  Receive Date: 20130517
  Receipt Date: 20131119
  Transmission Date: 20140711
  Serious: Yes (Death, Other)
  Sender: FDA-Public Use
  Company Number: CA-NAPPMUNDI-CAN-2013-0004162

PATIENT
  Age: 17 Year
  Sex: Male

DRUGS (3)
  1. HYDROMORPHONE HCL [Suspect]
     Indication: PRODUCT USED FOR UNKNOWN INDICATION
     Route: 045
  2. MARIJUANA [Suspect]
     Indication: PRODUCT USED FOR UNKNOWN INDICATION
     Route: 055
  3. ALCOHOL [Suspect]
     Indication: PRODUCT USED FOR UNKNOWN INDICATION
     Route: 048

REACTIONS (8)
  - Accidental overdose [Fatal]
  - Substance abuse [Unknown]
  - Brain death [Fatal]
  - Brain hypoxia [Fatal]
  - Loss of consciousness [Fatal]
  - Dyspnoea [Unknown]
  - Vomiting [Unknown]
  - Feeling abnormal [Unknown]
